FAERS Safety Report 6848274-1 (Version None)
Quarter: 2010Q3

REPORT INFORMATION
  Report Type: 
  Country: None (occurrence: None)
  Receive Date: 20100714
  Receipt Date: 20100701
  Transmission Date: 20110219
  Serious: Yes (Death)
  Sender: FDA-Public Use
  Company Number: 015123

PATIENT
  Age: 20 Month
  Sex: Female

DRUGS (3)
  1. LEVETIRACETAM [Suspect]
     Indication: PARTIAL SEIZURES
  2. BROMIDES (BROMIDES) [Suspect]
     Indication: PARTIAL SEIZURES
  3. STIRIPENTOL (STIRIPENTOL) [Suspect]
     Indication: PARTIAL SEIZURES

REACTIONS (1)
  - PNEUMONIA [None]
